FAERS Safety Report 8171911-9 (Version None)
Quarter: 2012Q1

REPORT INFORMATION
  Report Type: 
  Country: None (occurrence: None)
  Receive Date: 20120228
  Receipt Date: 20120221
  Transmission Date: 20120608
  Serious: Yes (Death, Life-Threatening, Hospitalization, Other)
  Sender: FDA-Public Use
  Company Number: US-PFIZER INC-2012049445

PATIENT
  Sex: Female

DRUGS (3)
  1. CELEBREX [Suspect]
     Dosage: UNK
     Dates: start: 20020501, end: 20020822
  2. VIOXX [Suspect]
     Dosage: UNK
  3. CELEBREX [Suspect]
     Indication: PAIN
     Dosage: UNK
     Dates: start: 19991223

REACTIONS (9)
  - ABDOMINAL PAIN [None]
  - MYOCARDIAL INFARCTION [None]
  - CARDIAC FAILURE CONGESTIVE [None]
  - SUPRAVENTRICULAR TACHYCARDIA [None]
  - CARDIOMYOPATHY [None]
  - ISCHAEMIC CARDIOMYOPATHY [None]
  - HYPERTENSION [None]
  - CARDIAC ANEURYSM [None]
  - ATRIAL FIBRILLATION [None]
